FAERS Safety Report 17516397 (Version 1)
Quarter: 2020Q1

REPORT INFORMATION
  Report Type: Spontaneous
  Country: US (occurrence: US)
  Receive Date: 20200309
  Receipt Date: 20200309
  Transmission Date: 20200409
  Serious: Yes (Other)
  Sender: FDA-Public Use
  Company Number: US-PFIZER INC-2020100823

PATIENT
  Age: 82 Year
  Sex: Male
  Weight: 77.98 kg

DRUGS (1)
  1. VYNDAQEL [Suspect]
     Active Substance: TAFAMIDIS MEGLUMINE
     Indication: AMYLOIDOSIS
     Dosage: 4 DF, DAILY
     Route: 048

REACTIONS (4)
  - Fall [Unknown]
  - Off label use [Unknown]
  - Product use in unapproved indication [Unknown]
  - Hip fracture [Unknown]
